FAERS Safety Report 16641651 (Version 2)
Quarter: 2019Q3

REPORT INFORMATION
  Report Type: Spontaneous
  Country: PL (occurrence: PN)
  Receive Date: 20190729
  Receipt Date: 20190910
  Transmission Date: 20191004
  Serious: Yes (Other)
  Sender: FDA-Public Use
  Company Number: PL-ROCHE-2357723

PATIENT
  Age: 62 Year
  Sex: Female
  Weight: 61 kg

DRUGS (3)
  1. ZELBORAF [Suspect]
     Active Substance: VEMURAFENIB
     Dosage: 2 TABLETS A 480MG TWICE A DAY
     Route: 048
     Dates: start: 20190103, end: 20190523
  2. COTELLIC [Suspect]
     Active Substance: COBIMETINIB
     Indication: METASTATIC MALIGNANT MELANOMA
     Route: 048
     Dates: start: 20190103, end: 20190523
  3. ZELBORAF [Suspect]
     Active Substance: VEMURAFENIB
     Indication: METASTATIC MALIGNANT MELANOMA
     Route: 048

REACTIONS (6)
  - Altered state of consciousness [Unknown]
  - Asthenia [Unknown]
  - General physical health deterioration [Unknown]
  - Arthralgia [Unknown]
  - Myalgia [Unknown]
  - Rash [Unknown]
